FAERS Safety Report 10010545 (Version 2)
Quarter: 2014Q1

REPORT INFORMATION
  Report Type: Spontaneous
  Country: FR (occurrence: FR)
  Receive Date: 20140314
  Receipt Date: 20140314
  Transmission Date: 20141002
  Serious: Yes (Other)
  Sender: FDA-Public Use
  Company Number: FR-BRISTOL-MYERS SQUIBB COMPANY-19170752

PATIENT
  Age: 33 Year
  Sex: Female

DRUGS (4)
  1. ABILIFY TABS 10 MG [Suspect]
     Indication: BIPOLAR DISORDER
     Route: 048
     Dates: end: 2013
  2. DEPAKOTE [Concomitant]
  3. ZYPREXA [Concomitant]
     Indication: BIPOLAR DISORDER
     Dates: start: 20131021
  4. ZOLOFT [Concomitant]
     Indication: BIPOLAR DISORDER
     Dates: start: 20131021

REACTIONS (2)
  - Abortion induced [Unknown]
  - Pregnancy [Recovered/Resolved]
